FAERS Safety Report 8144416-9 (Version None)
Quarter: 2012Q1

REPORT INFORMATION
  Report Type: 
  Country: None (occurrence: None)
  Receive Date: 20120103
  Receipt Date: 20110919
  Transmission Date: 20120608
  Serious: No
  Sender: FDA-Public Use
  Company Number: AE-2011-001615

PATIENT
  Age: 58 Year
  Sex: Female
  Weight: 79.3795 kg

DRUGS (4)
  1. INCIVEK [Suspect]
     Dosage: 2250 MG (750 MG, 3 IN 1 D), ORAL
     Route: 048
     Dates: start: 20110726
  2. RIBAPAK (RIBAVIRIN) [Concomitant]
  3. PEGASYS [Concomitant]
  4. PROCRIT [Concomitant]

REACTIONS (3)
  - DYSGEUSIA [None]
  - PRURITUS [None]
  - ANAL PRURITUS [None]
